FAERS Safety Report 24768202 (Version 1)
Quarter: 2024Q4

REPORT INFORMATION
  Report Type: Spontaneous
  Country: US (occurrence: None)
  Receive Date: 20241223
  Receipt Date: 20241223
  Transmission Date: 20250114
  Serious: Yes (Hospitalization)
  Sender: Public
  Company Number: None

PATIENT
  Sex: Female

DRUGS (11)
  1. VIGABATRIN [Suspect]
     Active Substance: VIGABATRIN
     Indication: Idiopathic partial epilepsy
     Dosage: FREQUENCY : TWICE A DAY;?
     Route: 048
  2. CALCIUM\VITAMIN D [Concomitant]
     Active Substance: CALCIUM\VITAMIN D
  3. VITAMIN D [Concomitant]
     Active Substance: VITAMIN D NOS
  4. FOLIC ACID [Concomitant]
     Active Substance: FOLIC ACID
  5. FISH OIL [Concomitant]
     Active Substance: FISH OIL
  6. VIMPAT [Concomitant]
     Active Substance: LACOSAMIDE
  7. CLONAZEPAM [Concomitant]
     Active Substance: CLONAZEPAM
  8. VITAMINS [Concomitant]
     Active Substance: VITAMINS
  9. LEVOTHYROXINE SODIUM [Concomitant]
     Active Substance: LEVOTHYROXINE SODIUM
  10. XCOPRI [Concomitant]
     Active Substance: CENOBAMATE
  11. VALTOCO 15 MG DOSE [Concomitant]

REACTIONS (1)
  - Hospitalisation [None]
